FAERS Safety Report 9852887 (Version 1)
Quarter: 2014Q1

REPORT INFORMATION
  Report Type: Spontaneous
  Country: BE (occurrence: BE)
  Receive Date: 20140129
  Receipt Date: 20140129
  Transmission Date: 20141002
  Serious: Yes (Other)
  Sender: FDA-Public Use
  Company Number: BE-PFIZER INC-2014024140

PATIENT
  Age: 75 Year
  Sex: Male

DRUGS (9)
  1. ALDACTONE [Suspect]
     Indication: RENAL FAILURE CHRONIC
     Dosage: 25 MG, ALTERNATE DAY
     Route: 048
     Dates: start: 201306
  2. ALLOPURINOL [Concomitant]
     Dosage: 300 MG, 1X/DAY
     Route: 048
  3. METFORMIN [Concomitant]
     Dosage: 500 MG, 1X/DAY
     Route: 048
  4. LASIX [Concomitant]
     Dosage: 40 MG, 1X/DAY
     Route: 048
  5. ASAFLOW [Concomitant]
     Dosage: 80 MG, 1X/DAY
     Route: 048
  6. GLURENORM ^BOEHRINGER^ [Concomitant]
     Dosage: 30 MG, 1X/DAY
     Route: 048
  7. ISOTEN [Concomitant]
     Dosage: 5 MG, 1X/DAY
     Route: 048
  8. COAPROVEL [Concomitant]
     Dosage: UNK
     Route: 048
  9. TEMESTA [Concomitant]
     Dosage: 1.25 MG, 1X/DAY
     Route: 048

REACTIONS (3)
  - Pruritus [Unknown]
  - Eczema [Unknown]
  - Rash maculo-papular [Unknown]
